FAERS Safety Report 8171377-9 (Version None)
Quarter: 2012Q1

REPORT INFORMATION
  Report Type: 
  Country: None (occurrence: None)
  Receive Date: 20120228
  Receipt Date: 20120213
  Transmission Date: 20120608
  Serious: Yes (Hospitalization)
  Sender: FDA-Public Use
  Company Number: IT-WATSON-2012-03077

PATIENT
  Age: 20 Year
  Sex: Male

DRUGS (1)
  1. PREDNISOLONE [Suspect]
     Indication: SARCOIDOSIS
     Dosage: 1 MG/KG, DAILY

REACTIONS (1)
  - DRUG WITHDRAWAL SYNDROME [None]
